FAERS Safety Report 4502641-X (Version None)
Quarter: 2004Q3

REPORT INFORMATION
  Report Type: 
  Country: None (occurrence: None)
  Receive Date: 20040928
  Receipt Date: 20040602
  Transmission Date: 20050211
  Serious: No
  Sender: FDA-Public Use
  Company Number: 04P-163-0262655-00

PATIENT
  Age: 64 Year
  Sex: Female

DRUGS (6)
  1. HUMIRA [Suspect]
     Indication: POLYARTHRITIS
     Dosage: 1 IN 2 WK, SUBCUTANEOUS
     Route: 058
     Dates: start: 20040305
  2. PREDNISONE [Concomitant]
  3. RISEDRONATE SODIUM [Concomitant]
  4. RALOXIFENE HCL [Concomitant]
  5. MULTIVITAMIN [Concomitant]
  6. CALCIUM WITH VITAMIN D [Concomitant]

REACTIONS (4)
  - CONTUSION [None]
  - FALL [None]
  - HAND FRACTURE [None]
  - HERPES SIMPLEX [None]
